FAERS Safety Report 4965896-3 (Version None)
Quarter: 2006Q2

REPORT INFORMATION
  Report Type: 
  Country: None (occurrence: None)
  Receive Date: 20060406
  Receipt Date: 20060406
  Transmission Date: 20061013
  Serious: No
  Sender: FDA-Public Use
  Company Number: None

PATIENT
  Sex: Female

DRUGS (2)
  1. VICRYL SUTURE [Suspect]
  2. TRICLOSAN [Suspect]

REACTIONS (9)
  - FLUID RETENTION [None]
  - HYPERSENSITIVITY [None]
  - MALAISE [None]
  - MUSCLE FATIGUE [None]
  - POST PROCEDURAL COMPLICATION [None]
  - RASH [None]
  - SKIN LESION [None]
  - SURGERY [None]
  - UTERINE NEOPLASM [None]
